FAERS Safety Report 18748386 (Version 4)
Quarter: 2021Q1

REPORT INFORMATION
  Report Type: Spontaneous
  Country: US (occurrence: US)
  Receive Date: 20210116
  Receipt Date: 20210116
  Transmission Date: 20210419
  Serious: Yes (Life-Threatening, Hospitalization, Other)
  Sender: FDA-Public Use
  Company Number: US-GLENMARK PHARMACEUTICALS-2021GMK051525

PATIENT
  Age: 35 Year
  Sex: Female
  Weight: 73 kg

DRUGS (17)
  1. KETAMINE [Concomitant]
     Active Substance: KETAMINE
     Indication: PRODUCT USED FOR UNKNOWN INDICATION
     Dosage: 10 MILLIGRAM PER HOURS
     Route: 065
  2. AMIODARONE [Concomitant]
     Active Substance: AMIODARONE
     Dosage: 150 MILLIGRAM, TOTAL (BOLUSES THROUGHOUT POD ONE AND TWO)
     Route: 065
  3. LIDOCAINE. [Suspect]
     Active Substance: LIDOCAINE
     Dosage: 78 MILLIGRAM (TOTAL)
     Route: 042
  4. EPINEPHRINE. [Concomitant]
     Active Substance: EPINEPHRINE
     Dosage: 0.06 MICROGRAM/KILOGRAM/MINUTES
     Route: 065
  5. AMIODARONE [Concomitant]
     Active Substance: AMIODARONE
     Dosage: 1 MILLIGRAM PER MINUTES
     Route: 065
  6. EPOPROSTENOL. [Concomitant]
     Active Substance: EPOPROSTENOL
     Indication: PRODUCT USED FOR UNKNOWN INDICATION
     Dosage: 50 NANOGRAM PER KILOGRAM PER MINUTES
     Route: 065
  7. AMIODARONE [Concomitant]
     Active Substance: AMIODARONE
     Dosage: 0.5 MILLIGRAM PER MINUTES
     Route: 065
  8. AMIODARONE [Concomitant]
     Active Substance: AMIODARONE
     Dosage: 150 MILLIGRAM (BOLUS)
     Route: 065
  9. DEXMEDETOMIDINE. [Concomitant]
     Active Substance: DEXMEDETOMIDINE
     Indication: PRODUCT USED FOR UNKNOWN INDICATION
     Dosage: 0.7 MICROGRAM/KILOGRAM PER HOURS
     Route: 065
  10. LIDOCAINE. [Suspect]
     Active Substance: LIDOCAINE
     Dosage: 2 MILLIGRAM/MINUTES
     Route: 042
  11. DOBUTAMINE [Concomitant]
     Active Substance: DOBUTAMINE HYDROCHLORIDE
     Dosage: 6 MICROGRAM/KILOGRAM/MINUTES
     Route: 065
  12. LIDOCAINE. [Suspect]
     Active Substance: LIDOCAINE
     Indication: VENTRICULAR ARRHYTHMIA
     Dosage: 4 MILLIGRAM/MINUTES
     Route: 042
  13. DOBUTAMINE [Concomitant]
     Active Substance: DOBUTAMINE HYDROCHLORIDE
     Indication: VENTRICULAR DYSFUNCTION
     Dosage: 7 MICROGRAM/KILOGRAM PER MINUTES
     Route: 065
  14. EPINEPHRINE. [Concomitant]
     Active Substance: EPINEPHRINE
     Indication: PRODUCT USED FOR UNKNOWN INDICATION
     Dosage: 0.04 MICROGRAM/KILOGRAM/MINUTES
     Route: 065
  15. VASOPRESSIN. [Concomitant]
     Active Substance: VASOPRESSIN
     Dosage: 0.03 INTERNATIONAL UNIT PER MINTUES
     Route: 065
  16. LIDOCAINE. [Suspect]
     Active Substance: LIDOCAINE
     Dosage: 3 MILLIGRAM/MINUTES
     Route: 042
  17. AMIODARONE [Concomitant]
     Active Substance: AMIODARONE
     Indication: VENTRICULAR TACHYCARDIA
     Dosage: 1 MILLIGRAM PER 6 MINUTES
     Route: 065

REACTIONS (5)
  - Generalised tonic-clonic seizure [Recovered/Resolved]
  - Neurotoxicity [Recovered/Resolved]
  - Local anaesthetic systemic toxicity [Recovered/Resolved]
  - Drug level above therapeutic [Recovered/Resolved]
  - Status epilepticus [Recovered/Resolved]
